FAERS Safety Report 8401831-3 (Version None)
Quarter: 2012Q2

REPORT INFORMATION
  Report Type: 
  Country: None (occurrence: None)
  Receive Date: 20120601
  Receipt Date: 20120524
  Transmission Date: 20120825
  Serious: Yes (Other)
  Sender: FDA-Public Use
  Company Number: JP-SANOFI-AVENTIS-2012SA038761

PATIENT
  Age: 79 Year
  Sex: Female

DRUGS (1)
  1. ZOLPIDEM [Suspect]
     Route: 048

REACTIONS (1)
  - INTRAOCULAR PRESSURE INCREASED [None]
